FAERS Safety Report 18152184 (Version 2)
Quarter: 2020Q3

REPORT INFORMATION
  Report Type: Report from Study
  Country: KR (occurrence: KR)
  Receive Date: 20200814
  Receipt Date: 20200831
  Transmission Date: 20201103
  Serious: Yes (Disabling, Other)
  Sender: FDA-Public Use
  Company Number: KR-JNJFOC-20200815621

PATIENT
  Age: 49 Year
  Sex: Female

DRUGS (1)
  1. DUROGESIC D?TRANS [Suspect]
     Active Substance: FENTANYL
     Indication: BACK PAIN
     Route: 062

REACTIONS (3)
  - Quadriplegia [Unknown]
  - Overdose [Unknown]
  - Respiratory depression [Unknown]
